FAERS Safety Report 20077132 (Version 2)
Quarter: 2021Q4

REPORT INFORMATION
  Report Type: Spontaneous
  Country: DE (occurrence: DE)
  Receive Date: 20211116
  Receipt Date: 20211119
  Transmission Date: 20220304
  Serious: Yes (Hospitalization)
  Sender: FDA-Public Use
  Company Number: DE-ADRED-07060-01

PATIENT
  Age: 81 Year
  Sex: Female
  Weight: 59 kg

DRUGS (14)
  1. APIXABAN [Suspect]
     Active Substance: APIXABAN
     Indication: Product used for unknown indication
     Dosage: UNK (5 MG, 1-0-1-0)
     Route: 048
  2. AMITRIPTYLINE [Concomitant]
     Active Substance: AMITRIPTYLINE
     Dosage: UNK (50 MG, 0-0-0-1)
     Route: 048
  3. AMLODIPIN                          /00972401/ [Concomitant]
     Dosage: UNK (5 MG, 1-0-0-1)
     Route: 048
  4. CANDESARTAN CILEXETIL\HYDROCHLOROTHIAZIDE [Concomitant]
     Active Substance: CANDESARTAN CILEXETIL\HYDROCHLOROTHIAZIDE
     Dosage: UNK (32|12.5 MG, 1-0-0-0)
     Route: 048
  5. EISENTABLETTEN [Concomitant]
     Dosage: UNK (100 MG, 1-0-0-0)
     Route: 048
  6. POLYETHYLENE GLYCOLS [Concomitant]
     Active Substance: POLYETHYLENE GLYCOLS
     Dosage: UNK (0-0-1-0)
     Route: 048
  7. METAMIZOL                          /06276701/ [Concomitant]
     Dosage: UNK (500 MG, 1-1-1-1)
     Route: 048
  8. NEBIVOLOL [Concomitant]
     Active Substance: NEBIVOLOL
     Dosage: UNK (5 MG, 1-0-1-0)
     Route: 048
  9. NEPRESOL                           /00017902/ [Concomitant]
     Dosage: UNK (25 MG, 0.5-0-0.5-0)
     Route: 048
  10. NIFEDIPINE [Concomitant]
     Active Substance: NIFEDIPINE
     Dosage: UNK (10 MG, 0.5-0-0.5-0)
     Route: 048
  11. OPIPRAMOL [Concomitant]
     Active Substance: OPIPRAMOL
     Dosage: UNK (50 MG, 1-1-1-1)
     Route: 048
  12. OXYCODONE [Concomitant]
     Active Substance: OXYCODONE
     Dosage: UNK (40 MG, 1-1-1-1)
     Route: 048
  13. RANITIDINE HYDROCHLORIDE [Concomitant]
     Active Substance: RANITIDINE HYDROCHLORIDE
     Dosage: UNK (150 MG, 1-0-0-0)
     Route: 048
  14. TORSEMIDE [Concomitant]
     Active Substance: TORSEMIDE
     Dosage: UNK (10 MG, 1-0-0-0)
     Route: 048

REACTIONS (7)
  - Decreased appetite [Unknown]
  - Faeces discoloured [Unknown]
  - Fatigue [Unknown]
  - Asthenia [Unknown]
  - Weight decreased [Unknown]
  - Faecaloma [Unknown]
  - Oedema peripheral [Unknown]
